FAERS Safety Report 8832624 (Version 1)
Quarter: 2012Q4

REPORT INFORMATION
  Report Type: Spontaneous
  Country: US (occurrence: None)
  Receive Date: 20121010
  Receipt Date: 20121010
  Transmission Date: 20130627
  Serious: Yes (Hospitalization, Other)
  Sender: FDA-Public Use
  Company Number: None

PATIENT
  Age: 57 Day
  Sex: Male
  Weight: 86.18 kg

DRUGS (1)
  1. METHYLPREDNISOLONE [Suspect]

REACTIONS (5)
  - Dizziness [None]
  - Vomiting [None]
  - Asthenia [None]
  - Gait disturbance [None]
  - Vertigo [None]
